FAERS Safety Report 23844905 (Version 1)
Quarter: 2024Q2

REPORT INFORMATION
  Report Type: Spontaneous
  Country: US (occurrence: US)
  Receive Date: 20240511
  Receipt Date: 20240511
  Transmission Date: 20240715
  Serious: No
  Sender: FDA-Public Use
  Company Number: US-THE RITEDOSE CORPORATION-2023RIT000125

PATIENT

DRUGS (1)
  1. LEVALBUTEROL [Suspect]
     Active Substance: LEVALBUTEROL
     Indication: Product used for unknown indication
     Dosage: UNK, Q8H
     Route: 065

REACTIONS (1)
  - SARS-CoV-2 test positive [Unknown]

NARRATIVE: CASE EVENT DATE: 20231018
